FAERS Safety Report 4798152-7 (Version None)
Quarter: 2005Q4

REPORT INFORMATION
  Report Type: 
  Country: None (occurrence: None)
  Receive Date: 20051011
  Receipt Date: 20050928
  Transmission Date: 20060501
  Serious: Yes (Hospitalization)
  Sender: FDA-Public Use
  Company Number: 2005136042

PATIENT
  Age: 50 Year
  Sex: Male

DRUGS (3)
  1. GABAPENTIN [Suspect]
     Indication: ILL-DEFINED DISORDER
     Dosage: (1800 MG,)
     Dates: start: 20030101
  2. BUPRENORPHINE (BUPRENORPHINE) [Suspect]
     Indication: NEURALGIA
     Dosage: 840 MCG (35 MCG, 1 IN 1 HR), TRANSDERMAL
     Route: 062
     Dates: start: 20050801, end: 20050801
  3. METFORMIN (METFORMIN) [Concomitant]

REACTIONS (1)
  - PANIC ATTACK [None]
